FAERS Safety Report 21065097 (Version 1)
Quarter: 2022Q3

REPORT INFORMATION
  Report Type: Spontaneous
  Country: BE (occurrence: BE)
  Receive Date: 20220711
  Receipt Date: 20220711
  Transmission Date: 20221026
  Serious: Yes (Other)
  Sender: FDA-Public Use
  Company Number: None

PATIENT
  Age: 47 Year
  Sex: Female
  Weight: 71 kg

DRUGS (1)
  1. EBASTINE [Suspect]
     Active Substance: EBASTINE
     Indication: Seasonal allergy
     Dosage: 1 DOSAGE FORM, QD (EVENING)
     Dates: start: 20220616, end: 20220617

REACTIONS (2)
  - Arrhythmia [Recovered/Resolved]
  - Tachycardia [Recovered/Resolved]

NARRATIVE: CASE EVENT DATE: 20220616
